FAERS Safety Report 25878181 (Version 1)
Quarter: 2025Q4

REPORT INFORMATION
  Report Type: Spontaneous
  Country: GB (occurrence: GB)
  Receive Date: 20251003
  Receipt Date: 20251003
  Transmission Date: 20260118
  Serious: Yes (Other)
  Sender: RANBAXY
  Company Number: GB-MHRA-TPP5840942C5416621YC1757692897087

PATIENT
  Age: 45 Year
  Sex: Female
  Weight: 72 kg

DRUGS (11)
  1. CODEINE [Suspect]
     Active Substance: CODEINE
     Indication: Ill-defined disorder
     Dosage: 15 MILLIGRAM
     Route: 065
     Dates: start: 20250822
  2. MORPHINE [Suspect]
     Active Substance: MORPHINE
     Indication: Adverse drug reaction
     Dosage: UNK
     Route: 065
     Dates: start: 20250912, end: 20250912
  3. NITROFURANTOIN [Concomitant]
     Active Substance: NITROFURANTOIN
     Indication: Ill-defined disorder
     Dosage: TAKE ONE TWICE DAILY
     Route: 065
     Dates: start: 20250629, end: 20250706
  4. COLCHICINE [Concomitant]
     Active Substance: COLCHICINE
     Indication: Ill-defined disorder
     Dosage: TAKE ONE TABLET TWO TO FOUR TIMES A DAY UNTIL S...
     Route: 065
     Dates: start: 20250822, end: 20250827
  5. AMITRIPTYLINE HYDROCHLORIDE [Concomitant]
     Active Substance: AMITRIPTYLINE HYDROCHLORIDE
     Indication: Ill-defined disorder
     Dosage: 2 AT NIGHT
     Route: 065
     Dates: start: 20240510
  6. PREGABALIN [Concomitant]
     Active Substance: PREGABALIN
     Indication: Ill-defined disorder
     Dosage: 1 TWICE A DAY
     Route: 065
     Dates: start: 20240510
  7. TOPIRAMATE [Concomitant]
     Active Substance: TOPIRAMATE
     Indication: Ill-defined disorder
     Dosage: TAKE ONE TWICE A DAY
     Route: 065
     Dates: start: 20240510
  8. METFORMIN [Concomitant]
     Active Substance: METFORMIN HYDROCHLORIDE
     Indication: Ill-defined disorder
     Dosage: THREE TABLETS DAILY
     Route: 065
     Dates: start: 20241023
  9. Hylo forte [Concomitant]
     Indication: Ill-defined disorder
     Dosage: ONE DROP FOUR TIMES A DAY
     Route: 065
     Dates: start: 20241205
  10. Hylo forte [Concomitant]
     Dosage: UNK
     Route: 065
  11. DESOGESTREL [Concomitant]
     Active Substance: DESOGESTREL
     Indication: Ill-defined disorder
     Dosage: TAKE 2 DAILY AS PER GYNAE ADVICE
     Route: 065
     Dates: start: 20250123

REACTIONS (1)
  - Epilepsy [Recovered/Resolved]

NARRATIVE: CASE EVENT DATE: 20250823
